FAERS Safety Report 10048940 (Version 1)
Quarter: 2014Q1

REPORT INFORMATION
  Report Type: Spontaneous
  Country: SE (occurrence: SE)
  Receive Date: 20140331
  Receipt Date: 20140331
  Transmission Date: 20141002
  Serious: Yes (Other)
  Sender: FDA-Public Use
  Company Number: SE-ACTAVIS-2013-24942

PATIENT
  Age: 73 Year
  Sex: Female

DRUGS (1)
  1. LAMOTRIGIN ACTAVIS [Suspect]
     Indication: EPILEPSY
     Dosage: UNK UNK, UNKNOWN
     Route: 065
     Dates: end: 20130907

REACTIONS (1)
  - Meningitis [Unknown]
